FAERS Safety Report 20476378 (Version 1)
Quarter: 2022Q1

REPORT INFORMATION
  Report Type: Spontaneous
  Country: AU (occurrence: AU)
  Receive Date: 20220215
  Receipt Date: 20220215
  Transmission Date: 20220424
  Serious: Yes (Other)
  Sender: FDA-Public Use
  Company Number: AU-PFIZER INC-202200197452

PATIENT
  Age: 26 Year
  Sex: Male

DRUGS (2)
  1. SULFASALAZINE [Suspect]
     Active Substance: SULFASALAZINE
     Indication: Peripheral spondyloarthritis
     Dosage: 2 G, DAILY (UP-TITRATED)
  2. MELOXICAM [Concomitant]
     Active Substance: MELOXICAM
     Indication: Peripheral spondyloarthritis
     Dosage: 15 MG, DAILY

REACTIONS (1)
  - Myopathy [Recovered/Resolved]
